FAERS Safety Report 7373922 (Version 3)
Quarter: 2013Q4

REPORT INFORMATION
  Report Type: Spontaneous
  Country: US (occurrence: US)
  Receive Date: 20100503
  Receipt Date: 20131119
  Transmission Date: 20140711
  Serious: Yes (Hospitalization)
  Sender: FDA-Public Use
  Company Number: US-BAYER-201020668NA

PATIENT
  Age: 25 Year
  Sex: Female
  Weight: 99.77 kg

DRUGS (10)
  1. YAZ [Suspect]
     Indication: OVARIAN CYST
     Dosage: UNK UNK, QD
     Route: 048
     Dates: start: 20080228, end: 200902
  2. YAZ [Suspect]
     Indication: ENDOMETRIOSIS
  3. YASMIN [Suspect]
     Indication: PRODUCT USED FOR UNKNOWN INDICATION
  4. TYLENOL WITH CODEINE [Concomitant]
  5. CODEINE [Concomitant]
  6. ADVIL [IBUPROFEN] [Concomitant]
     Indication: ARTHRALGIA
  7. VICODIN [Concomitant]
     Dosage: 7.5 MG, UNK
     Dates: start: 200806
  8. HYDROCHLOROTHIAZIDE [Concomitant]
     Dosage: 25 MG, UNK
     Dates: start: 200806
  9. LEVAQUIN [Concomitant]
     Indication: CYSTITIS
     Dosage: UNK
     Dates: start: 200810
  10. TINDAMAX [Concomitant]
     Dosage: 500 MG, UNK
     Route: 048

REACTIONS (11)
  - Bile duct stone [None]
  - Cholecystitis acute [None]
  - Cholelithiasis [None]
  - Abdominal pain upper [None]
  - Nausea [None]
  - Jaundice [None]
  - Vomiting [None]
  - Pain [None]
  - Back pain [None]
  - Abdominal pain [None]
  - Local swelling [None]
